FAERS Safety Report 15141277 (Version 1)
Quarter: 2018Q3

REPORT INFORMATION
  Report Type: Spontaneous
  Country: AU (occurrence: AU)
  Receive Date: 20180713
  Receipt Date: 20180713
  Transmission Date: 20181010
  Serious: Yes (Other)
  Sender: FDA-Public Use
  Company Number: AU-TEVA-2018-AU-924807

PATIENT
  Age: 30 Year
  Sex: Female

DRUGS (4)
  1. AMISULPRIDE [Suspect]
     Active Substance: AMISULPRIDE
     Route: 065
  2. FLUPENTIXOL DECANOATE [Suspect]
     Active Substance: FLUPENTIXOL DECANOATE
     Route: 065
  3. CLOZARIL [Suspect]
     Active Substance: CLOZAPINE
     Route: 065
  4. ARIPIPRAZOLE. [Suspect]
     Active Substance: ARIPIPRAZOLE
     Route: 065

REACTIONS (20)
  - Blood bicarbonate decreased [Unknown]
  - Neutrophil count decreased [Unknown]
  - Blood urea decreased [Unknown]
  - Electrocardiogram QT prolonged [Unknown]
  - Amenorrhoea [Unknown]
  - Amnesia [Unknown]
  - Glomerular filtration rate increased [Unknown]
  - Protein total increased [Unknown]
  - Myocarditis [Unknown]
  - Hyperprolactinaemia [Unknown]
  - Tardive dyskinesia [Unknown]
  - Anion gap increased [Unknown]
  - Blood glucose increased [Unknown]
  - Blood magnesium increased [Unknown]
  - Blood triglycerides increased [Unknown]
  - Chest pain [Unknown]
  - White blood cell count decreased [Unknown]
  - Alanine aminotransferase increased [Unknown]
  - Troponin increased [Unknown]
  - Blood bilirubin increased [Unknown]
